FAERS Safety Report 15905983 (Version 2)
Quarter: 2024Q1

REPORT INFORMATION
  Report Type: Spontaneous
  Country: US (occurrence: US)
  Receive Date: 20190204
  Receipt Date: 20240308
  Transmission Date: 20240409
  Serious: No
  Sender: FDA-Public Use
  Company Number: US-JAZZ-2019-US-000216

PATIENT
  Age: 40 Year
  Sex: Female

DRUGS (1)
  1. XYREM [Suspect]
     Active Substance: SODIUM OXYBATE
     Indication: Product used for unknown indication
     Route: 048

REACTIONS (5)
  - Drug interaction [Unknown]
  - Somnolence [Recovered/Resolved]
  - Lethargy [Recovered/Resolved]
  - Medication error [Unknown]
  - Unevaluable event [Unknown]
